FAERS Safety Report 21481650 (Version 1)
Quarter: 2022Q4

REPORT INFORMATION
  Report Type: Spontaneous
  Country: CN (occurrence: CN)
  Receive Date: 20221020
  Receipt Date: 20221020
  Transmission Date: 20230113
  Serious: Yes (Other)
  Sender: FDA-Public Use
  Company Number: None

PATIENT
  Age: 38 Year
  Sex: Female
  Weight: 54 kg

DRUGS (6)
  1. CYCLOPHOSPHAMIDE [Suspect]
     Active Substance: CYCLOPHOSPHAMIDE
     Indication: Breast cancer female
     Dosage: FOURTH CHEMOTHERAPY- 870 MG, QD (DILUTED WITH SODIUM CHLORIDE 45 ML), DOSAGE FORM- POWDER INJECTION
     Route: 042
     Dates: start: 20220630, end: 20220630
  2. CYCLOPHOSPHAMIDE [Suspect]
     Active Substance: CYCLOPHOSPHAMIDE
     Indication: Chemotherapy
  3. SODIUM CHLORIDE [Suspect]
     Active Substance: SODIUM CHLORIDE
     Indication: Medication dilution
     Dosage: FOURTH CHEMOTHERAPY- 45 ML, QD (DILUTED WITH CYCLOPHOSPHAMIDE 870 MG)
     Route: 042
     Dates: start: 20220630, end: 20220630
  4. SODIUM CHLORIDE [Suspect]
     Active Substance: SODIUM CHLORIDE
     Dosage: FOURTH CHEMOTHERAPY- 250 ML, QD (DILUTED WITH DOCETAXEL 118 MG)
     Route: 041
     Dates: start: 20220630, end: 20220630
  5. DOCETAXEL [Suspect]
     Active Substance: DOCETAXEL
     Indication: Breast cancer female
     Dosage: FOURTH CHEMOTHERAPY- 118 MG, QD (DILUTED WITH SODIUM CHLORIDE 250 ML)
     Route: 041
     Dates: start: 20220630, end: 20220630
  6. DOCETAXEL [Suspect]
     Active Substance: DOCETAXEL
     Indication: Chemotherapy

REACTIONS (2)
  - White blood cell count decreased [Recovered/Resolved]
  - Agranulocytosis [Recovered/Resolved]

NARRATIVE: CASE EVENT DATE: 20220707
